FAERS Safety Report 23701702 (Version 2)
Quarter: 2024Q4

REPORT INFORMATION
  Report Type: Spontaneous
  Country: JP (occurrence: None)
  Receive Date: 20240403
  Receipt Date: 20241113
  Transmission Date: 20250114
  Serious: Yes (Hospitalization)
  Sender: ORION
  Company Number: JP-Orion Corporation ORION PHARMA-ENT 2024-0014

PATIENT
  Age: 9 Decade
  Sex: Female

DRUGS (2)
  1. COMTAN [Suspect]
     Active Substance: ENTACAPONE
     Indication: Parkinson^s disease
     Dosage: STRENGTH: 100 MG, ALREADY TOOK 60 TABLETS
     Dates: start: 20210908, end: 20220218
  2. ENTACAPONE [Suspect]
     Active Substance: ENTACAPONE
     Indication: Parkinson^s disease
     Dosage: STRENGTH: 100 MG
     Dates: start: 20220219

REACTIONS (1)
  - Nasal sinus cancer [Recovering/Resolving]

NARRATIVE: CASE EVENT DATE: 20231201
